FAERS Safety Report 9027755 (Version 4)
Quarter: 2013Q3

REPORT INFORMATION
  Report Type: Spontaneous
  Country: US (occurrence: US)
  Receive Date: 20130123
  Receipt Date: 20130814
  Transmission Date: 20140515
  Serious: Yes (Hospitalization, Other)
  Sender: FDA-Public Use
  Company Number: US-009507513-1301USA010130

PATIENT
  Sex: Female
  Weight: 81.63 kg

DRUGS (10)
  1. FOSAMAX [Suspect]
     Indication: OSTEOPENIA
     Dosage: 70 MG, QW
     Route: 048
     Dates: start: 20040127, end: 200805
  2. FOSAMAX [Suspect]
     Indication: OSTEOPOROSIS
  3. ALENDRONATE SODIUM [Suspect]
     Indication: OSTEOPENIA
     Dosage: 70 MG, QW
     Route: 048
     Dates: start: 200805, end: 200812
  4. ALENDRONATE SODIUM [Suspect]
     Indication: OSTEOPOROSIS
     Dosage: 70 MG, QW
     Route: 048
     Dates: start: 201002, end: 201009
  5. CALCIUM (UNSPECIFIED) [Concomitant]
     Dosage: 1000 MG, UNK
     Dates: start: 1987
  6. VITAMIN D (UNSPECIFIED) [Concomitant]
     Dosage: 400-1000 IU
     Dates: start: 1987
  7. ASCORBIC ACID [Concomitant]
     Dosage: 500 MG, UNK
     Dates: start: 1987
  8. HORMONES (UNSPECIFIED) [Concomitant]
     Dosage: UNK
     Dates: start: 1990, end: 2010
  9. CORTICOSTEROIDS (UNSPECIFIED) [Concomitant]
     Dosage: UNK
     Dates: start: 2000, end: 2009
  10. FEXOFENADINE HYDROCHLORIDE [Concomitant]
     Indication: SEASONAL ALLERGY
     Dosage: 60 MG, QD
     Route: 048

REACTIONS (46)
  - Intramedullary rod insertion [Recovered/Resolved]
  - Fracture nonunion [Unknown]
  - Device breakage [Unknown]
  - Surgery [Unknown]
  - Device breakage [Unknown]
  - Bursitis infective [Unknown]
  - Femur fracture [Unknown]
  - Hip arthroplasty [Unknown]
  - Procedural haemorrhage [Unknown]
  - Knee arthroplasty [Unknown]
  - Cardiac pacemaker insertion [Unknown]
  - Spinal operation [Unknown]
  - Breast cancer [Unknown]
  - Mastectomy [Unknown]
  - Lung neoplasm malignant [Unknown]
  - Amnesia [Unknown]
  - Femur fracture [Recovered/Resolved]
  - Atrial fibrillation [Unknown]
  - Tooth extraction [Unknown]
  - Dental prosthesis placement [Unknown]
  - Blood cholesterol increased [Unknown]
  - Cardiac disorder [Unknown]
  - Arthritis [Unknown]
  - Hypoaesthesia [Unknown]
  - Atrial flutter [Unknown]
  - Snoring [Unknown]
  - Muscular weakness [Unknown]
  - Depression [Unknown]
  - Large intestine polyp [Unknown]
  - Spinal osteoarthritis [Unknown]
  - Osteoarthritis [Unknown]
  - Arrhythmia [Unknown]
  - Hypercalcaemia [Unknown]
  - Wheezing [Unknown]
  - Paraesthesia [Unknown]
  - Temperature intolerance [Unknown]
  - Red blood cell sedimentation rate increased [Unknown]
  - C-reactive protein increased [Unknown]
  - Postoperative wound complication [Unknown]
  - Pain [Unknown]
  - Back pain [Not Recovered/Not Resolved]
  - Nausea [Unknown]
  - Vomiting [Unknown]
  - Diarrhoea [Unknown]
  - Pruritus [Unknown]
  - Gastrooesophageal reflux disease [Unknown]
